FAERS Safety Report 7543941-9 (Version None)
Quarter: 2011Q2

REPORT INFORMATION
  Report Type: 
  Country: None (occurrence: None)
  Receive Date: 20110613
  Receipt Date: 20110531
  Transmission Date: 20111010
  Serious: Yes (Hospitalization)
  Sender: FDA-Public Use
  Company Number: PHHY2011NL47198

PATIENT
  Sex: Male

DRUGS (3)
  1. ZOMETA [Suspect]
     Dosage: 4 MG, EVERY 28 DAYS
     Dates: start: 20080620
  2. ZOMETA [Suspect]
     Dosage: 4 MG, EVERY 28 DAYS
     Dates: start: 20110531
  3. ZOMETA [Suspect]
     Dosage: 4 MG, EVERY 28 DAYS
     Dates: start: 20110506

REACTIONS (1)
  - RESPIRATORY TRACT INFECTION [None]
